FAERS Safety Report 7059413-4 (Version None)
Quarter: 2010Q4

REPORT INFORMATION
  Report Type: 
  Country: None (occurrence: None)
  Receive Date: 20101025
  Receipt Date: 20101014
  Transmission Date: 20110411
  Serious: Yes (Hospitalization, Other)
  Sender: FDA-Public Use
  Company Number: US-BAYER-201035635NA

PATIENT
  Age: 32 Year
  Sex: Female

DRUGS (3)
  1. BETASERON [Suspect]
     Indication: RELAPSING-REMITTING MULTIPLE SCLEROSIS
     Dosage: TOTAL DAILY DOSE: 8 MIU
     Route: 058
     Dates: start: 20100602
  2. STEROIDS [Concomitant]
  3. ACETAMINOPHEN [Concomitant]
     Indication: PREMEDICATION

REACTIONS (13)
  - ABDOMINAL PAIN UPPER [None]
  - ALANINE AMINOTRANSFERASE INCREASED [None]
  - ASPARTATE AMINOTRANSFERASE INCREASED [None]
  - CHILLS [None]
  - DIZZINESS [None]
  - FALL [None]
  - GASTRITIS [None]
  - HEPATIC STEATOSIS [None]
  - INJECTION SITE PAIN [None]
  - INJECTION SITE RASH [None]
  - MULTIPLE SCLEROSIS RELAPSE [None]
  - OESOPHAGEAL DISCOMFORT [None]
  - PAIN [None]
